FAERS Safety Report 19032119 (Version 1)
Quarter: 2021Q1

REPORT INFORMATION
  Report Type: Other
  Country: IT (occurrence: IT)
  Receive Date: 20210319
  Receipt Date: 20210319
  Transmission Date: 20210420
  Serious: Yes (Other)
  Sender: FDA-Public Use
  Company Number: IT-ROCHE-2786062

PATIENT

DRUGS (1)
  1. RITUXIMAB. [Suspect]
     Active Substance: RITUXIMAB
     Indication: GLOMERULONEPHRITIS MEMBRANOUS
     Dosage: ON DAYS 1 AN 15
     Route: 042

REACTIONS (7)
  - Acute coronary syndrome [Unknown]
  - Drug intolerance [Unknown]
  - Breast cancer [Unknown]
  - Hyperglycaemia [Unknown]
  - Infusion related reaction [Unknown]
  - Cerebrovascular accident [Unknown]
  - Infection [Unknown]
